FAERS Safety Report 10774833 (Version 1)
Quarter: 2015Q1

REPORT INFORMATION
  Report Type: Spontaneous
  Country: US (occurrence: None)
  Receive Date: 20150206
  Receipt Date: 20150206
  Transmission Date: 20150721
  Serious: Yes (Other)
  Sender: FDA-Public Use
  Company Number: HYP201407-000045

PATIENT
  Age: 45 Year
  Sex: Female

DRUGS (6)
  1. CITRULLINE (CITRULLINE) [Concomitant]
  2. LAMICTAL [Concomitant]
     Active Substance: LAMOTRIGINE
  3. RAVICTI [Suspect]
     Active Substance: GLYCEROL PHENYLBUTYRATE
     Indication: UREA CYCLE ENZYME DEFICIENCY
     Dates: start: 20140618, end: 20140704
  4. VIMPAT [Concomitant]
     Active Substance: LACOSAMIDE
  5. CALCIUM (CALCIUM) [Concomitant]
     Active Substance: CALCIUM
  6. VITAMINS /00067501/ (ASCORBIC ACID, ERGOCALCIFEROL, NICOTINAMIDE, RETINOL, RIBOFLAVIN, THIAMINE HYDROCHLORIDE) ONGOING [Concomitant]

REACTIONS (7)
  - Abdominal distension [None]
  - Pollakiuria [None]
  - Seizure [None]
  - Tremor [None]
  - Urine odour abnormal [None]
  - Skin odour abnormal [None]
  - Decreased appetite [None]

NARRATIVE: CASE EVENT DATE: 20140704
